FAERS Safety Report 5444773-8 (Version None)
Quarter: 2007Q3

REPORT INFORMATION
  Report Type: 
  Country: None (occurrence: None)
  Receive Date: 20070906
  Receipt Date: 20070309
  Transmission Date: 20080115
  Serious: No
  Sender: FDA-Public Use
  Company Number: A0642598A

PATIENT
  Age: 74 Year
  Sex: Female

DRUGS (14)
  1. REQUIP [Suspect]
     Indication: RESTLESS LEGS SYNDROME
     Dosage: 4MG PER DAY
     Route: 048
     Dates: start: 20060201
  2. GABAPENTIN [Concomitant]
  3. LISINOPRIL AND HYDROCHLOROTHIAZIDE [Concomitant]
  4. FEXOFENADINE [Concomitant]
  5. FUROSEMIDE [Concomitant]
  6. SERTRALINE HCL [Concomitant]
  7. OMEPRAZOLE [Concomitant]
  8. LEVOTHYROXINE SODIUM [Concomitant]
  9. SIMVASTATIN [Concomitant]
  10. THEOPHYLLINE [Concomitant]
  11. TRICOR [Concomitant]
  12. FISH OIL [Concomitant]
  13. SPIRIVA [Concomitant]
  14. PROVENTIL-HFA [Concomitant]

REACTIONS (1)
  - DRUG INEFFECTIVE [None]
